FAERS Safety Report 8878322 (Version 3)
Quarter: 2013Q2

REPORT INFORMATION
  Report Type: Report from Study
  Country: JP (occurrence: JP)
  Receive Date: 20121030
  Receipt Date: 20130516
  Transmission Date: 20140414
  Serious: Yes (Other)
  Sender: FDA-Public Use
  Company Number: JP-VERTEX PHARMACEUTICAL INC.-2012-023646

PATIENT
  Age: 60 Year
  Sex: Female

DRUGS (14)
  1. VX-950 (TELAPREVIR) [Suspect]
     Indication: CHRONIC HEPATITIS C
     Dosage: 2250 MG, QD
     Route: 048
     Dates: start: 20120425, end: 20120717
  2. RIBAVIRIN [Suspect]
     Indication: CHRONIC HEPATITIS C
     Dosage: 600 MG, QD
     Route: 048
     Dates: start: 20120425, end: 20120507
  3. RIBAVIRIN [Suspect]
     Dosage: 400 MG, QD
     Route: 048
     Dates: start: 20120508, end: 20120522
  4. RIBAVIRIN [Suspect]
     Dosage: 200 MG, QD
     Route: 048
     Dates: start: 20120523, end: 20120611
  5. RIBAVIRIN [Suspect]
     Dosage: 200 MG, QOD
     Route: 048
     Dates: start: 20120612, end: 20120702
  6. RIBAVIRIN [Suspect]
     Dosage: 200MG/2 C/WEEK
     Route: 048
     Dates: start: 20120703, end: 20120723
  7. RIBAVIRIN [Suspect]
     Dosage: 200MG/1 C/WEEK
     Route: 048
     Dates: start: 20120724, end: 20120806
  8. RIBAVIRIN [Suspect]
     Dosage: 200 MG /2 C/WEEK
     Route: 048
     Dates: start: 20120807, end: 20120820
  9. RIBAVIRIN [Suspect]
     Dosage: 200 MG, QOD
     Route: 048
     Dates: start: 20120821, end: 20120903
  10. RIBAVIRIN [Suspect]
     Dosage: 200 MG, QD
     Route: 048
     Dates: start: 20120904
  11. PEGINTERFERON ALFA-2B [Suspect]
     Indication: CHRONIC HEPATITIS C
     Dosage: 1.4 ?G/KG, QW
     Route: 058
     Dates: start: 20120425
  12. URSO [Concomitant]
     Dosage: 100 MG, QD
     Route: 048
     Dates: end: 20120524
  13. NOVAMIN [Concomitant]
     Dosage: 15 MG, QD
     Route: 048
     Dates: start: 20120612, end: 20120813
  14. LIVALO [Concomitant]
     Dosage: 2 MG, QD
     Route: 048

REACTIONS (1)
  - Retinopathy [Recovered/Resolved]
